FAERS Safety Report 6827887-7 (Version None)
Quarter: 2010Q3

REPORT INFORMATION
  Report Type: 
  Country: None (occurrence: None)
  Receive Date: 20100709
  Receipt Date: 20100623
  Transmission Date: 20110219
  Serious: Yes (Hospitalization)
  Sender: FDA-Public Use
  Company Number: A0863302A

PATIENT
  Age: 49 Year
  Sex: Female
  Weight: 129.5 kg

DRUGS (7)
  1. AVANDIA [Suspect]
     Indication: DIABETES MELLITUS
     Dosage: 4MG PER DAY
     Route: 048
     Dates: start: 19980101, end: 20070203
  2. GLUCOPHAGE [Concomitant]
  3. AMARYL [Concomitant]
  4. PAXIL [Concomitant]
  5. ZESTRIL [Concomitant]
  6. EFFEXOR [Concomitant]
  7. BUPROPION HCL [Concomitant]

REACTIONS (11)
  - ACUTE CORONARY SYNDROME [None]
  - AMNESIA [None]
  - CARDIAC FAILURE CONGESTIVE [None]
  - CARDIAC PACEMAKER INSERTION [None]
  - CORONARY ARTERY DISEASE [None]
  - DEPRESSION [None]
  - LOSS OF EMPLOYMENT [None]
  - MYOCARDIAL INFARCTION [None]
  - PALPITATIONS [None]
  - VENTRICULAR EXTRASYSTOLES [None]
  - VENTRICULAR TACHYCARDIA [None]
